FAERS Safety Report 18530658 (Version 1)
Quarter: 2020Q4

REPORT INFORMATION
  Report Type: Spontaneous
  Country: US (occurrence: US)
  Receive Date: 20201121
  Receipt Date: 20201121
  Transmission Date: 20210114
  Serious: No
  Sender: FDA-Public Use
  Company Number: NVSC2020US303974

PATIENT
  Age: 55 Year
  Sex: Female
  Weight: 100.45 kg

DRUGS (1)
  1. 68 GA DOTATATE [Suspect]
     Active Substance: DOTATATE GALLIUM GA-68
     Indication: CARCINOID TUMOUR
     Dosage: 5.35 MCI
     Route: 042
     Dates: start: 20200818

REACTIONS (5)
  - Vomiting [Unknown]
  - Blood pressure increased [Unknown]
  - Back pain [Unknown]
  - Nausea [Unknown]
  - Abdominal pain [Unknown]

NARRATIVE: CASE EVENT DATE: 20201104
